FAERS Safety Report 24059941 (Version 4)
Quarter: 2024Q3

REPORT INFORMATION
  Report Type: Spontaneous
  Country: KR (occurrence: KR)
  Receive Date: 20240708
  Receipt Date: 20240801
  Transmission Date: 20241016
  Serious: Yes (Life-Threatening, Hospitalization, Other)
  Sender: CELLTRION
  Company Number: KR-CELLTRION INC.-2024KR015857

PATIENT

DRUGS (31)
  1. RITUXIMAB [Suspect]
     Active Substance: RITUXIMAB
     Indication: Mantle cell lymphoma
     Dosage: UNK / TRUXIMA 100 MG
     Dates: start: 20240511, end: 20240521
  2. RITUXIMAB [Suspect]
     Active Substance: RITUXIMAB
     Dosage: UNK / TRUXIMA 500 MG
     Dates: start: 20240610, end: 20240614
  3. RITUXIMAB [Suspect]
     Active Substance: RITUXIMAB
     Dosage: 633 MG, ONCE / CYCLE 1 : D1  (DOSE/DAY: 375 MG/M2)
     Route: 042
     Dates: start: 20240521
  4. RITUXIMAB [Suspect]
     Active Substance: RITUXIMAB
     Dosage: 633 MG, ONCE / CYCLE 2 : D1 (DOSE/DAY: 375 MG/M2)
     Route: 042
     Dates: start: 20240617, end: 20240617
  5. CYTARABINE [Suspect]
     Active Substance: CYTARABINE
     Indication: Mantle cell lymphoma
     Dosage: UNK
     Dates: start: 20240610, end: 20240614
  6. CYTARABINE [Suspect]
     Active Substance: CYTARABINE
     Dosage: 835 MG, ONCE / CYCLE 2 : D2
     Route: 042
     Dates: start: 20240618, end: 20240618
  7. CYTARABINE [Suspect]
     Active Substance: CYTARABINE
     Dosage: 835 MG, ONCE / CYCLE 2 : D3
     Route: 042
     Dates: start: 20240619, end: 20240619
  8. CYTARABINE [Suspect]
     Active Substance: CYTARABINE
     Dosage: 835 MG, ONCE / CYCLE 2 : D4
     Route: 042
     Dates: start: 20240620, end: 20240620
  9. BENDAMUSTINE [Suspect]
     Active Substance: BENDAMUSTINE
     Indication: Product used for unknown indication
     Dosage: UNK
     Dates: start: 20240511, end: 20240521
  10. BENDAMUSTINE [Suspect]
     Active Substance: BENDAMUSTINE
     Dosage: 116 MG, ONCE
     Route: 042
     Dates: start: 20240518, end: 20240518
  11. BENDAMUSTINE [Suspect]
     Active Substance: BENDAMUSTINE
     Dosage: 116 MG, ONCE
     Route: 042
     Dates: start: 20240519, end: 20240519
  12. BENDAMUSTINE [Suspect]
     Active Substance: BENDAMUSTINE
     Dosage: 152 MG, ONCE
     Route: 042
     Dates: start: 20240521, end: 20240521
  13. BENDAMUSTINE [Suspect]
     Active Substance: BENDAMUSTINE
     Dosage: 152 MG, ONCE / CYCLE 1 : D2 (DOSE/DAY: 70 MG/M2)
     Route: 042
     Dates: start: 20240522, end: 20240522
  14. BENDAMUSTINE [Suspect]
     Active Substance: BENDAMUSTINE
     Dosage: 152 MG, ONCE / CYCLE 1 : D3 (DOSE/DAY: 70 MG/M2)
     Route: 042
     Dates: start: 20240523
  15. BENDAMUSTINE [Suspect]
     Active Substance: BENDAMUSTINE
     Dosage: 152 MG, ONCE / CYCLE 2 : D2 (DOSE/DAY: 70 MG/M2)
     Route: 042
     Dates: start: 20240618
  16. BENDAMUSTINE [Suspect]
     Active Substance: BENDAMUSTINE
     Dosage: 152 MG, ONCE / CYCLE 2 : D3 (DOSE/DAY: 70 MG/M2)
     Route: 042
     Dates: start: 20240619
  17. PEGFILGRASTIM [Suspect]
     Active Substance: PEGFILGRASTIM
     Indication: Product used for unknown indication
     Dosage: 6 MG, ONCE
     Route: 058
     Dates: start: 20240621, end: 20240621
  18. PHENIRAMIN [Concomitant]
     Indication: Premedication
     Dosage: 4 MG
     Route: 042
     Dates: start: 20240628
  19. PHENIRAMIN [Concomitant]
     Dosage: 4 MG, 1 AMPOULE
     Route: 042
     Dates: start: 20240521, end: 20240521
  20. LAFUTIDINE [Concomitant]
     Active Substance: LAFUTIDINE
     Indication: Gastritis
     Dosage: UNK
     Route: 048
     Dates: start: 20240617
  21. LAFUTIDINE [Concomitant]
     Active Substance: LAFUTIDINE
     Indication: Prophylaxis
  22. TRAMADOL HYDROCHLORIDE [Concomitant]
     Active Substance: TRAMADOL HYDROCHLORIDE
     Indication: Central venous catheterisation
     Dosage: UNK
     Route: 042
     Dates: start: 20240521, end: 20240521
  23. TRAMADOL HYDROCHLORIDE [Concomitant]
     Active Substance: TRAMADOL HYDROCHLORIDE
     Indication: Prophylaxis
  24. SULFAMETHOXAZOLE\TRIMETHOPRIM [Concomitant]
     Active Substance: SULFAMETHOXAZOLE\TRIMETHOPRIM
     Indication: Antibiotic therapy
     Dosage: UNK
     Route: 048
     Dates: start: 20240521
  25. SULFAMETHOXAZOLE\TRIMETHOPRIM [Concomitant]
     Active Substance: SULFAMETHOXAZOLE\TRIMETHOPRIM
     Indication: Prophylaxis
  26. ALLOPURINOL [Concomitant]
     Active Substance: ALLOPURINOL
     Indication: Antibiotic therapy
     Dosage: UNK
     Route: 048
     Dates: start: 20240521, end: 20240527
  27. ALLOPURINOL [Concomitant]
     Active Substance: ALLOPURINOL
     Indication: Prophylaxis
  28. ACETAMINOPHEN [Concomitant]
     Active Substance: ACETAMINOPHEN
     Indication: Premedication
     Dosage: UNK
     Route: 048
     Dates: start: 20240521, end: 20240521
  29. PALSERON [Concomitant]
     Indication: Premedication
     Dosage: 1 DF (1 VIAL)
     Route: 042
     Dates: start: 20240521, end: 20240521
  30. XYZAL [Concomitant]
     Active Substance: LEVOCETIRIZINE DIHYDROCHLORIDE
     Indication: Rhinitis allergic
     Dosage: 1 DF (1 TABLET)
     Route: 048
     Dates: start: 20240517
  31. XYZAL [Concomitant]
     Active Substance: LEVOCETIRIZINE DIHYDROCHLORIDE
     Indication: Urticaria

REACTIONS (5)
  - Platelet count decreased [Recovered/Resolved]
  - Neutrophil count decreased [Recovered/Resolved]
  - Tongue discomfort [Recovered/Resolved]
  - Chills [Recovered/Resolved]
  - Intentional product use issue [Unknown]

NARRATIVE: CASE EVENT DATE: 20240627
